FAERS Safety Report 14441571 (Version 7)
Quarter: 2018Q1

REPORT INFORMATION
  Report Type: Spontaneous
  Country: US (occurrence: US)
  Receive Date: 20180125
  Receipt Date: 20180328
  Transmission Date: 20180509
  Serious: Yes (Disabling, Other)
  Sender: FDA-Public Use
  Company Number: US-GLAXOSMITHKLINE-US2018012347

PATIENT
  Age: 64 Year
  Sex: Male
  Weight: 69.39 kg

DRUGS (1)
  1. ADVAIR DISKUS [Suspect]
     Active Substance: FLUTICASONE PROPIONATE\SALMETEROL XINAFOATE
     Indication: CHRONIC OBSTRUCTIVE PULMONARY DISEASE
     Dosage: 1 PUFF(S), BID
     Route: 055
     Dates: start: 20170321

REACTIONS (9)
  - Blindness unilateral [Not Recovered/Not Resolved]
  - Retinal artery occlusion [Not Recovered/Not Resolved]
  - Neoplasm malignant [Unknown]
  - Visual impairment [Unknown]
  - Retinal vein occlusion [Unknown]
  - Intraocular pressure test abnormal [Not Recovered/Not Resolved]
  - Adverse drug reaction [Unknown]
  - Ill-defined disorder [Unknown]
  - Depression [Unknown]

NARRATIVE: CASE EVENT DATE: 201705
